FAERS Safety Report 18040038 (Version 1)
Quarter: 2020Q3

REPORT INFORMATION
  Report Type: Spontaneous
  Country: AU (occurrence: AU)
  Receive Date: 20200717
  Receipt Date: 20200717
  Transmission Date: 20201103
  Serious: Yes (Other)
  Sender: FDA-Public Use
  Company Number: AU-JNJFOC-20200714573

PATIENT
  Sex: Female
  Weight: 85 kg

DRUGS (1)
  1. STELARA [Suspect]
     Active Substance: USTEKINUMAB
     Indication: CROHN^S DISEASE
     Dosage: 130X4. WEIGHT BASED.
     Route: 042

REACTIONS (5)
  - Pruritus [Unknown]
  - Breast tenderness [Unknown]
  - Incorrect dose administered [Unknown]
  - Breast disorder [Unknown]
  - Off label use [Unknown]
